FAERS Safety Report 9335685 (Version 2)
Quarter: 2013Q3

REPORT INFORMATION
  Report Type: Spontaneous
  Country: US (occurrence: US)
  Receive Date: 20130605
  Receipt Date: 20130827
  Transmission Date: 20140515
  Serious: No
  Sender: FDA-Public Use
  Company Number: US-009507513-1305USA017157

PATIENT
  Age: 24 Year
  Sex: Female

DRUGS (2)
  1. NEXPLANON [Suspect]
     Dosage: 1 ROD EVERY THREE YEARS
     Route: 059
     Dates: start: 20130523, end: 20130523
  2. NEXPLANON [Suspect]
     Dosage: 1 ROD EVERY THREE YEARS
     Route: 059
     Dates: start: 20130523

REACTIONS (3)
  - Device deployment issue [Unknown]
  - Product quality issue [Unknown]
  - No adverse event [Unknown]
